FAERS Safety Report 5548354-7 (Version None)
Quarter: 2007Q4

REPORT INFORMATION
  Report Type: 
  Country: None (occurrence: None)
  Receive Date: 20071211
  Receipt Date: 20071203
  Transmission Date: 20080405
  Serious: Yes (Other)
  Sender: FDA-Public Use
  Company Number: GB-MERCK-0712GBR00011

PATIENT
  Age: 68 Year
  Sex: Male
  Weight: 95 kg

DRUGS (9)
  1. VYTORIN [Suspect]
     Indication: BLOOD CHOLESTEROL INCREASED
     Route: 048
     Dates: start: 20070412
  2. ASPIRIN [Concomitant]
     Route: 065
  3. ACETAMINOPHEN AND DIHYDROCODEINE BITARTRATE [Concomitant]
     Route: 065
  4. DILTIAZEM HYDROCHLORIDE [Concomitant]
     Route: 065
  5. ESOMEPRAZOLE [Concomitant]
     Route: 065
  6. FOLIC ACID [Concomitant]
     Route: 065
  7. GLICLAZIDE [Concomitant]
     Route: 065
  8. LISINOPRIL [Concomitant]
     Route: 065
  9. METFORMIN [Concomitant]
     Route: 065

REACTIONS (5)
  - ASTHENIA [None]
  - FATIGUE [None]
  - MUSCULOSKELETAL STIFFNESS [None]
  - MYALGIA [None]
  - PAIN IN EXTREMITY [None]
